FAERS Safety Report 9205061 (Version 2)
Quarter: 2013Q2

REPORT INFORMATION
  Report Type: Spontaneous
  Country: US (occurrence: US)
  Receive Date: 20130402
  Receipt Date: 20130529
  Transmission Date: 20140414
  Serious: Yes (Hospitalization)
  Sender: FDA-Public Use
  Company Number: US-INCYTE CORPORATION-2013IN000613

PATIENT
  Age: 71 Year
  Sex: Male

DRUGS (3)
  1. JAKAFI [Suspect]
     Indication: MYELOFIBROSIS
     Dosage: 15 MG, BID
     Route: 048
     Dates: start: 20121015
  2. JAKAFI [Suspect]
     Indication: ANAEMIA OF CHRONIC DISEASE
     Dosage: 5 MG, BID
     Route: 048
     Dates: start: 20130501, end: 201305
  3. JAKAFI [Suspect]
     Dosage: ALTERNATES BETWEEN 1-2 TABS, QD
     Route: 048
     Dates: start: 201305

REACTIONS (3)
  - Viral infection [Unknown]
  - Rectal haemorrhage [Unknown]
  - Hospitalisation [Unknown]
